FAERS Safety Report 4689487-7 (Version None)
Quarter: 2005Q2

REPORT INFORMATION
  Report Type: 
  Country: None (occurrence: None)
  Receive Date: 20050614
  Receipt Date: 20050607
  Transmission Date: 20051028
  Serious: Yes (Other)
  Sender: FDA-Public Use
  Company Number: PHBS2005PT08127

PATIENT
  Age: 56 Year
  Sex: Male

DRUGS (6)
  1. AREDIA [Suspect]
     Indication: MULTIPLE MYELOMA
     Dosage: 90 MG, QMO
     Route: 042
     Dates: start: 19980301, end: 20040101
  2. ZOMETA [Suspect]
     Indication: MULTIPLE MYELOMA
     Dosage: 4 MG, QMO
     Route: 042
     Dates: start: 20040101, end: 20050330
  3. THALIDOMIDE [Concomitant]
     Dosage: 200 MG/D
     Route: 048
  4. DEXAMETHASONE [Concomitant]
     Dosage: 40 MG/D
     Route: 048
  5. FOLIC ACID [Concomitant]
  6. RANITIDINE [Concomitant]

REACTIONS (2)
  - ASEPTIC NECROSIS BONE [None]
  - OSTEONECROSIS [None]
